FAERS Safety Report 16452303 (Version 8)
Quarter: 2023Q4

REPORT INFORMATION
  Report Type: Spontaneous
  Country: US (occurrence: US)
  Receive Date: 20190619
  Receipt Date: 20231201
  Transmission Date: 20240110
  Serious: Yes (Death, Life-Threatening, Hospitalization, Other)
  Sender: FDA-Public Use
  Company Number: US-MYLANLABS-2019M1056031

PATIENT
  Age: 30 Year
  Sex: Male
  Weight: 64.853 kg

DRUGS (42)
  1. EPIPEN [Suspect]
     Active Substance: EPINEPHRINE
     Indication: Food allergy
     Dosage: 0.3 MILLIGRAM
     Route: 065
     Dates: start: 20190604, end: 20190604
  2. EPIPEN [Suspect]
     Active Substance: EPINEPHRINE
     Indication: Anaphylactic shock
     Dosage: 0.3 MILLILITER ONCE AS NEEDED
     Route: 030
     Dates: start: 20140422
  3. EPIPEN [Suspect]
     Active Substance: EPINEPHRINE
     Dosage: UNK
     Route: 065
     Dates: start: 20220727
  4. ACETAMINOPHEN [Concomitant]
     Active Substance: ACETAMINOPHEN
     Dosage: UNK
     Route: 065
     Dates: start: 20221018
  5. ACETAMINOPHEN [Concomitant]
     Active Substance: ACETAMINOPHEN
     Dosage: UNK
     Route: 065
     Dates: start: 20221018
  6. ACETAMINOPHEN [Concomitant]
     Active Substance: ACETAMINOPHEN
     Indication: Pain
     Dosage: 20.3 MILLILITER
     Route: 065
     Dates: start: 20220112
  7. ACETAMINOPHEN [Concomitant]
     Active Substance: ACETAMINOPHEN
     Indication: Paroxysmal sympathetic hyperactivity
  8. ALBUTEROL [Concomitant]
     Active Substance: ALBUTEROL
     Indication: Wheezing
     Dosage: 2.5 MILLIGRAM
     Route: 065
  9. ALBUTEROL [Concomitant]
     Active Substance: ALBUTEROL
     Dosage: 2.5 MILLIGRAM
     Route: 065
  10. ALBUTEROL [Concomitant]
     Active Substance: ALBUTEROL
     Indication: Wheezing
     Dosage: 2 DOSAGE FORM
     Route: 065
     Dates: start: 20221213
  11. APIXABAN [Concomitant]
     Active Substance: APIXABAN
     Indication: Embolism venous
     Dosage: 2.5 MILLIGRAM
     Route: 065
     Dates: start: 20220511
  12. BACLOFEN [Concomitant]
     Active Substance: BACLOFEN
     Dosage: 15 MILLILITER, 3XW
     Route: 065
     Dates: start: 20230330
  13. BACLOFEN [Concomitant]
     Active Substance: BACLOFEN
     Dosage: 15 MILLILITER, 3XW
     Route: 065
     Dates: start: 20230604
  14. BACLOFEN [Concomitant]
     Active Substance: BACLOFEN
     Dosage: UNK
     Route: 065
     Dates: start: 20221129
  15. BUDESONIDE\FORMOTEROL [Concomitant]
     Active Substance: BUDESONIDE\FORMOTEROL
     Dosage: 2 DOSAGE FORM, BID
     Route: 065
     Dates: start: 20230707
  16. BUDESONIDE\FORMOTEROL FUMARATE DIHYDRATE [Concomitant]
     Active Substance: BUDESONIDE\FORMOTEROL FUMARATE DIHYDRATE
     Dosage: UNK
     Route: 065
  17. CARBOXYMETHYLCELLULOSE SODIUM [Concomitant]
     Active Substance: CARBOXYMETHYLCELLULOSE SODIUM
     Dosage: UNK
     Route: 065
  18. CETIRIZINE [Concomitant]
     Active Substance: CETIRIZINE HYDROCHLORIDE
     Dosage: 5 MILLIGRAM
     Route: 065
     Dates: start: 20230511
  19. CHLORHEXIDINE [Concomitant]
     Active Substance: CHLORHEXIDINE\CHLORHEXIDINE GLUCONATE
     Dosage: UNK
     Route: 065
  20. CLINDAMYCIN [Concomitant]
     Active Substance: CLINDAMYCIN
     Dosage: UNK
     Route: 065
     Dates: start: 20220221
  21. CLOBAZAM [Concomitant]
     Active Substance: CLOBAZAM
     Dosage: 1 DOSAGE FORM
     Route: 065
     Dates: start: 20220107
  22. CLOBAZAM [Concomitant]
     Active Substance: CLOBAZAM
     Dosage: 1 DOSAGE FORM, BID
     Route: 065
     Dates: start: 20221130
  23. DIAZEPAM [Concomitant]
     Active Substance: DIAZEPAM
     Dosage: 10 MILLIGRAM
     Route: 065
     Dates: start: 20230511
  24. DOCUSATE SODIUM [Concomitant]
     Active Substance: DOCUSATE SODIUM
     Indication: Constipation
     Dosage: 5 MILLILITER
     Route: 065
     Dates: start: 20230511
  25. DOXYCYCLINE HYCLATE [Concomitant]
     Active Substance: DOXYCYCLINE HYCLATE
     Indication: Pneumonia
     Dosage: 100 MILLIGRAM
     Route: 065
     Dates: start: 20230511
  26. ELIQUIS [Concomitant]
     Active Substance: APIXABAN
     Dosage: 1 DOSAGE FORM
     Route: 065
     Dates: start: 20220106
  27. FAMOTIDINE [Concomitant]
     Active Substance: FAMOTIDINE
     Dosage: 1 DOSAGE FORM
     Route: 065
     Dates: start: 20220106
  28. BISACODYL [Concomitant]
     Active Substance: BISACODYL
     Dosage: 1 DOSAGE FORM
     Route: 065
     Dates: start: 20220222
  29. GUAIFENESIN [Concomitant]
     Active Substance: GUAIFENESIN
     Dosage: 200 MILLIGRAM
     Route: 048
  30. GUAIFENESIN [Concomitant]
     Active Substance: GUAIFENESIN
     Dosage: 400 MILLIGRAM
     Route: 048
     Dates: start: 20221203
  31. GUAIFENESIN [Concomitant]
     Active Substance: GUAIFENESIN
     Dosage: 400 MILLIGRAM, 3XW
     Route: 048
     Dates: start: 20230111
  32. LEVETIRACETAM [Concomitant]
     Active Substance: LEVETIRACETAM
     Dosage: 1000 MILLIGRAM
     Route: 065
     Dates: start: 20220106
  33. LEVETIRACETAM [Concomitant]
     Active Substance: LEVETIRACETAM
     Dosage: 10 MILLILITER, 3XW
     Route: 065
     Dates: start: 20221118
  34. METOPROLOL TARTRATE [Concomitant]
     Active Substance: METOPROLOL TARTRATE
     Dosage: 25 MILLIGRAM, BID
     Route: 065
     Dates: start: 20220106
  35. MICONAZOLE [Concomitant]
     Active Substance: MICONAZOLE
     Indication: Pruritus
     Dosage: (APPLY TOPICALLY 2 TIMES A DAY)
     Route: 065
  36. MICONAZOLE [Concomitant]
     Active Substance: MICONAZOLE
     Dosage: (APPLY 1 APPLICATION TOPICALLY)
     Route: 065
  37. MORPHINE [Concomitant]
     Active Substance: MORPHINE
     Indication: Pain
     Dosage: 5 MILLIGRAM, BID
     Route: 065
     Dates: start: 20230511
  38. MORPHINE [Concomitant]
     Active Substance: MORPHINE
     Dosage: 0.25 MILLILITER
     Route: 065
     Dates: start: 20230111
  39. PREDNISONE [Concomitant]
     Active Substance: PREDNISONE
     Dosage: UNK
     Route: 065
     Dates: start: 20230711
  40. SENNOSIDES [Concomitant]
     Active Substance: SENNOSIDES
     Dosage: 5 MILLILITER
     Route: 065
     Dates: start: 20230511
  41. SYMBICORT [Concomitant]
     Active Substance: BUDESONIDE\FORMOTEROL FUMARATE DIHYDRATE
     Dosage: (USE 2 INHALATIONS BY MOUTH EVERY 12 HOURS)
     Route: 065
     Dates: start: 20220916
  42. VIMPAT [Concomitant]
     Active Substance: LACOSAMIDE
     Dosage: 1 DOSAGE FORM
     Route: 065
     Dates: start: 20220107

REACTIONS (3)
  - Cardiac arrest [Fatal]
  - Device failure [Not Recovered/Not Resolved]
  - Needle issue [Not Recovered/Not Resolved]

NARRATIVE: CASE EVENT DATE: 20190604
